FAERS Safety Report 6395097-6 (Version None)
Quarter: 2009Q4

REPORT INFORMATION
  Report Type: 
  Country: None (occurrence: None)
  Receive Date: 20091009
  Receipt Date: 20090928
  Transmission Date: 20100525
  Serious: Yes (Hospitalization)
  Sender: FDA-Public Use
  Company Number: IT-BAYER-200931896GPV

PATIENT
  Age: 30 Year
  Sex: Male

DRUGS (1)
  1. BAY79-4980 1X/WEEK + PLACEBO 2X/WEEK OR RFVIII FS 3X/WEEK [Suspect]
     Indication: FACTOR VIII DEFICIENCY
     Dosage: AS USED: 35/25 IU/KG
     Route: 042
     Dates: start: 20090907

REACTIONS (1)
  - RECTAL HAEMORRHAGE [None]
